FAERS Safety Report 12703518 (Version 1)
Quarter: 2016Q3

REPORT INFORMATION
  Report Type: Report from Study
  Country: CA (occurrence: CA)
  Receive Date: 20160831
  Receipt Date: 20160831
  Transmission Date: 20161109
  Serious: Yes (Death)
  Sender: FDA-Public Use
  Company Number: CA-009507513-1608CAN012282

PATIENT
  Sex: Female
  Weight: 40 kg

DRUGS (1)
  1. IVERMECTIN. [Suspect]
     Active Substance: IVERMECTIN
     Indication: STRONGYLOIDIASIS
     Dosage: 9 MG (PER DAY), BID (3 MG= 1 TABLET; 3 TABS/DAY FOR 7 DAYS= 21 TABLETS; REPEAT 1= TOTAL 42 TABLETS
     Route: 048
     Dates: start: 2016, end: 2016

REACTIONS (1)
  - Death [Fatal]

NARRATIVE: CASE EVENT DATE: 2016
